FAERS Safety Report 9381330 (Version 2)
Quarter: 2014Q1

REPORT INFORMATION
  Report Type: Spontaneous
  Country: GB (occurrence: GB)
  Receive Date: 20130703
  Receipt Date: 20140221
  Transmission Date: 20141002
  Serious: Yes (Other)
  Sender: FDA-Public Use
  Company Number: GB-JNJFOC-20130618577

PATIENT
  Age: 27 Year
  Sex: Female

DRUGS (2)
  1. REMICADE [Suspect]
     Indication: CROHN^S DISEASE
     Dosage: 5 MONTHS AGO STARTED, 0,2,6 THEN 8 WEEKLY.APPROXIMATELY RECEVIED 4 INFUSION
     Route: 042
     Dates: start: 20130220, end: 20130521
  2. AZATHIOPRINE [Suspect]
     Indication: CROHN^S DISEASE
     Route: 048
     Dates: start: 201302

REACTIONS (1)
  - Diffuse large B-cell lymphoma [Recovering/Resolving]
